FAERS Safety Report 6849929-5 (Version None)
Quarter: 2010Q3

REPORT INFORMATION
  Report Type: 
  Country: None (occurrence: None)
  Receive Date: 20100716
  Receipt Date: 20071008
  Transmission Date: 20110219
  Serious: No
  Sender: FDA-Public Use
  Company Number: US-PFIZER INC-2007085167

PATIENT
  Sex: Female
  Weight: 75 kg

DRUGS (8)
  1. CHANTIX [Suspect]
     Indication: SMOKING CESSATION THERAPY
     Dates: start: 20071003
  2. LAMICTAL [Concomitant]
  3. ZOLOFT [Concomitant]
  4. CLARITIN [Concomitant]
  5. IBUPROFEN [Concomitant]
  6. DIAZEPAM [Concomitant]
  7. TRAZODONE HYDROCHLORIDE [Concomitant]
  8. FENTANYL [Concomitant]

REACTIONS (2)
  - ABDOMINAL DISCOMFORT [None]
  - NAUSEA [None]
